FAERS Safety Report 11706342 (Version 1)
Quarter: 2015Q4

REPORT INFORMATION
  Report Type: Spontaneous
  Country: NO (occurrence: NO)
  Receive Date: 20151106
  Receipt Date: 20151106
  Transmission Date: 20160304
  Serious: Yes (Congenital Anomaly, Other)
  Sender: FDA-Public Use
  Company Number: NO-VIIV HEALTHCARE LIMITED-B0635787A

PATIENT
  Sex: Male

DRUGS (2)
  1. ATAZANAVIR [Suspect]
     Active Substance: ATAZANAVIR
     Indication: HIV INFECTION
     Route: 064
  2. ABACAVIR. [Suspect]
     Active Substance: ABACAVIR
     Indication: HIV INFECTION
     Route: 064

REACTIONS (6)
  - Syndactyly [Recovered/Resolved with Sequelae]
  - Cleft lip and palate [Recovered/Resolved with Sequelae]
  - Premature baby [Recovered/Resolved with Sequelae]
  - Talipes [Recovered/Resolved with Sequelae]
  - Congenital jaw malformation [Recovered/Resolved with Sequelae]
  - Aplasia [Recovered/Resolved with Sequelae]
